FAERS Safety Report 8044285-1 (Version None)
Quarter: 2012Q1

REPORT INFORMATION
  Report Type: 
  Country: None (occurrence: None)
  Receive Date: 20120113
  Receipt Date: 20120105
  Transmission Date: 20120608
  Serious: Yes (Death)
  Sender: FDA-Public Use
  Company Number: JP-ASTELLAS-2011US007754

PATIENT
  Sex: Female
  Weight: 54 kg

DRUGS (11)
  1. TARCEVA [Suspect]
     Dosage: 150 MG, UID/QD
     Route: 048
     Dates: start: 20111029, end: 20111114
  2. LENDORMIN [Concomitant]
     Indication: INSOMNIA
     Dosage: 1 DF, UNKNOWN/D
     Route: 048
     Dates: start: 20090410
  3. GAMOFA [Concomitant]
     Indication: PRODUCT USED FOR UNKNOWN INDICATION
     Dosage: 2 DF, BID
     Route: 048
     Dates: start: 20100908
  4. DECADRON [Concomitant]
     Indication: MENINGITIS
     Dosage: 1.5 MG, BID
     Route: 048
     Dates: start: 20110831
  5. LORFENAMIN [Concomitant]
     Indication: CANCER PAIN
     Dosage: 1 DF, TID
     Route: 048
     Dates: start: 20110304
  6. PAXIL [Concomitant]
     Indication: INSOMNIA
     Dosage: 1 DF, UID/QD
     Route: 048
     Dates: start: 20090410
  7. TARCEVA [Suspect]
     Dosage: 100 MG, UID/QD
     Route: 048
     Dates: start: 20111010, end: 20111013
  8. ANPEC [Concomitant]
     Indication: CANCER PAIN
     Dosage: 20 MG, SINGLE USE
     Route: 054
     Dates: start: 20110922
  9. TARCEVA [Suspect]
     Indication: LUNG ADENOCARCINOMA
     Dosage: 75 MG, UID/QD
     Route: 048
     Dates: start: 20110923, end: 20111009
  10. TARCEVA [Suspect]
     Dosage: 150 MG, UID/QD
     Route: 048
     Dates: start: 20111014, end: 20111019
  11. FENTANYL-100 [Concomitant]
     Indication: CANCER PAIN
     Dosage: 8.4 MG, TID
     Route: 003
     Dates: start: 20110922

REACTIONS (3)
  - WHITE BLOOD CELL COUNT DECREASED [None]
  - LUNG ADENOCARCINOMA [None]
  - NEUTROPHIL COUNT DECREASED [None]
